FAERS Safety Report 9897159 (Version 2)
Quarter: 2014Q1

REPORT INFORMATION
  Report Type: Spontaneous
  Country: FR (occurrence: FR)
  Receive Date: 20140214
  Receipt Date: 20140311
  Transmission Date: 20141002
  Serious: Yes (Life-Threatening, Hospitalization, Other)
  Sender: FDA-Public Use
  Company Number: FR-BRISTOL-MYERS SQUIBB COMPANY-20146023

PATIENT
  Age: 63 Year
  Sex: Male

DRUGS (7)
  1. ONGLYZA TABS 5 MG [Suspect]
     Indication: TYPE 2 DIABETES MELLITUS
     Route: 048
     Dates: start: 20131114, end: 20131124
  2. METFORMIN HCL [Suspect]
     Indication: TYPE 2 DIABETES MELLITUS
     Route: 048
     Dates: start: 20131116, end: 20131124
  3. AMAREL [Suspect]
     Indication: TYPE 2 DIABETES MELLITUS
     Route: 048
     Dates: start: 20131114, end: 20131124
  4. OFLOCET [Suspect]
     Indication: PROSTATITIS
     Dates: start: 20131115, end: 20131201
  5. ATENOLOL [Suspect]
     Route: 048
  6. INEXIUM [Concomitant]
     Route: 048
  7. LIPANTHYL [Concomitant]
     Route: 048

REACTIONS (2)
  - Hypoglycaemic coma [Not Recovered/Not Resolved]
  - Incorrect dose administered [Recovered/Resolved]
